FAERS Safety Report 4699439-9 (Version None)
Quarter: 2005Q2

REPORT INFORMATION
  Report Type: 
  Country: None (occurrence: None)
  Receive Date: 20050622
  Receipt Date: 20050608
  Transmission Date: 20051028
  Serious: Yes (Hospitalization, Other)
  Sender: FDA-Public Use
  Company Number: A-CH2004-07744

PATIENT
  Age: 39 Year
  Sex: Female
  Weight: 54.5 kg

DRUGS (14)
  1. BOSENTAN [Suspect]
     Indication: PULMONARY HYPERTENSION
     Dosage: 62.5 MG, QD, ORAL
     Route: 048
     Dates: start: 20021114, end: 20021120
  2. BOSENTAN [Suspect]
     Indication: PULMONARY HYPERTENSION
     Dosage: 125 MG, QD, ORAL
     Route: 048
     Dates: start: 20041013, end: 20041019
  3. BOSENTAN [Suspect]
     Indication: PULMONARY HYPERTENSION
     Dosage: 125 MG, QD, ORAL
     Route: 048
     Dates: start: 20021121, end: 20041211
  4. BOSENTAN [Suspect]
     Indication: PULMONARY HYPERTENSION
     Dosage: 250 MG, QD, ORAL
     Route: 048
     Dates: start: 20021212, end: 20041012
  5. ............................ [Concomitant]
  6. PREDNISOLONE [Concomitant]
  7. ENALAPRIL MALEATE [Concomitant]
  8. ROCALTROL [Concomitant]
  9. JUVELA NICOTINATE (TOCOPHERYL NICOTINATE) [Concomitant]
  10. ADALAT [Concomitant]
  11. MAG-LAX (MAGNESIUM HYDROXIDE, PARAFFIN, LIQUID) [Concomitant]
  12. WARFARIN SODIUM [Concomitant]
  13. ALUMINIUM HYDROXIDE W/ MAGNESIUM HYDROXIDE (MAGNESIUM HYDROXIDE, ALUMI [Concomitant]
  14. SUCRALFATE [Concomitant]

REACTIONS (7)
  - BLOOD LACTATE DEHYDROGENASE INCREASED [None]
  - INTERNATIONAL NORMALISED RATIO DECREASED [None]
  - MENORRHAGIA [None]
  - PLATELET COUNT DECREASED [None]
  - PROTHROMBIN TIME PROLONGED [None]
  - PYREXIA [None]
  - RED BLOOD CELL COUNT DECREASED [None]
